FAERS Safety Report 13318071 (Version 1)
Quarter: 2017Q1

REPORT INFORMATION
  Report Type: Spontaneous
  Country: US (occurrence: US)
  Receive Date: 20170309
  Receipt Date: 20170309
  Transmission Date: 20170428
  Serious: No
  Sender: FDA-Public Use
  Company Number: None

PATIENT
  Age: 58 Year
  Sex: Female
  Weight: 77.85 kg

DRUGS (12)
  1. PANTOPRAZOLE [Suspect]
     Active Substance: PANTOPRAZOLE SODIUM
     Indication: HELICOBACTER INFECTION
     Route: 048
  2. PROBIOTICS [Concomitant]
     Active Substance: PROBIOTICS NOS
  3. FISH OIL [Concomitant]
     Active Substance: FISH OIL
  4. SUDAFED [Concomitant]
     Active Substance: PSEUDOEPHEDRINE HYDROCHLORIDE
  5. VITAMIN D3 [Concomitant]
     Active Substance: CHOLECALCIFEROL
  6. AMINO ACIDS [Concomitant]
     Active Substance: AMINO ACIDS
  7. LEVOTHYROXINE. [Concomitant]
     Active Substance: LEVOTHYROXINE
  8. ESTRADIOL. [Concomitant]
     Active Substance: ESTRADIOL
  9. PROGESTERONE. [Concomitant]
     Active Substance: PROGESTERONE
  10. MULTIVITAMIN [Concomitant]
     Active Substance: VITAMINS
  11. IGG [Concomitant]
     Active Substance: HUMAN IMMUNOGLOBULIN G
  12. MAGNESIUM [Concomitant]
     Active Substance: MAGNESIUM

REACTIONS (9)
  - Diarrhoea [None]
  - Flatulence [None]
  - Nausea [None]
  - Tremor [None]
  - Headache [None]
  - Muscle spasms [None]
  - Abdominal distension [None]
  - Arthralgia [None]
  - Abdominal discomfort [None]

NARRATIVE: CASE EVENT DATE: 20150401
